FAERS Safety Report 7367568-7 (Version None)
Quarter: 2011Q1

REPORT INFORMATION
  Report Type: 
  Country: None (occurrence: None)
  Receive Date: 20110322
  Receipt Date: 20110307
  Transmission Date: 20110831
  Serious: Yes (Hospitalization, Other)
  Sender: FDA-Public Use
  Company Number: US-AMGEN-USASP2011013203

PATIENT

DRUGS (13)
  1. DOXORUBICIN [Suspect]
     Indication: BURKITT'S LYMPHOMA
     Dosage: 40 MG/M2, UNK
  2. IFOSFAMIDE [Suspect]
     Indication: BURKITT'S LYMPHOMA
     Dosage: 1500 MG/M2, UNK
     Route: 042
  3. PLATELETS [Concomitant]
  4. NEUPOGEN [Suspect]
     Route: 064
  5. RITUXIMAB [Suspect]
     Indication: BURKITT'S LYMPHOMA
     Dosage: 375 MG/M2, UNK
  6. PREDNISONE [Suspect]
     Indication: BURKITT'S LYMPHOMA
     Dosage: 100 MG, UNK
     Route: 048
  7. CYCLOPHOSPHAMIDE [Suspect]
     Indication: BURKITT'S LYMPHOMA
     Dosage: 800 MG/M2, UNK
     Route: 042
  8. CYTARABINE [Suspect]
     Indication: BURKITT'S LYMPHOMA
     Dosage: 70 MG, UNK
     Route: 037
  9. VINCRISTINE [Suspect]
     Indication: BURKITT'S LYMPHOMA
     Dosage: 2 MG, UNK
  10. ETOPOSIDE [Suspect]
     Indication: BURKITT'S LYMPHOMA
     Dosage: 60 MG/M2, UNK
  11. RED BLOOD CELLS [Concomitant]
  12. MESNA [Suspect]
     Indication: BURKITT'S LYMPHOMA
     Dosage: 1500 MG/M2, UNK
     Route: 042
  13. ANTIBIOTICS [Concomitant]

REACTIONS (2)
  - STILLBIRTH [None]
  - FOETAL GROWTH RESTRICTION [None]
